FAERS Safety Report 7399118-3 (Version None)
Quarter: 2011Q1

REPORT INFORMATION
  Report Type: 
  Country: None (occurrence: None)
  Receive Date: 20110328
  Receipt Date: 20110314
  Transmission Date: 20110831
  Serious: Yes (Death)
  Sender: FDA-Public Use
  Company Number: 2011001252

PATIENT
  Age: 73 Year
  Sex: Male

DRUGS (3)
  1. ERLOTINIB (ERLOTINIB) (TABLET) (ERLOTINIB) [Suspect]
     Indication: NON-SMALL CELL LUNG CANCER
     Dosage: 150 MG, DAILY, ORAL
     Route: 048
     Dates: start: 20090209, end: 20090514
  2. ESOMEPRAZOLE (ESOMEPRAZOLE) [Concomitant]
  3. MYPOL [Concomitant]

REACTIONS (1)
  - MELAENA [None]
